FAERS Safety Report 17839407 (Version 1)
Quarter: 2020Q2

REPORT INFORMATION
  Report Type: Spontaneous
  Country: US (occurrence: US)
  Receive Date: 20200529
  Receipt Date: 20200529
  Transmission Date: 20200714
  Serious: Yes (Hospitalization)
  Sender: FDA-Public Use
  Company Number: US-STRIDES ARCOLAB LIMITED-2020SP004579

PATIENT
  Sex: Female
  Weight: 69 kg

DRUGS (2)
  1. VANCOMYCIN [Suspect]
     Active Substance: VANCOMYCIN
     Indication: OSTEOMYELITIS
     Dosage: UNK
     Route: 065
  2. PIPERACILLIN/TAZOBACTAM [Concomitant]
     Active Substance: PIPERACILLIN SODIUM\TAZOBACTAM SODIUM
     Indication: OSTEOMYELITIS
     Dosage: LESS THAN OR EQUAL TO 0.5/9.5MG/
     Route: 065

REACTIONS (2)
  - Leukopenia [Recovered/Resolved]
  - Pyrexia [Recovered/Resolved]
